FAERS Safety Report 14945808 (Version 5)
Quarter: 2018Q2

REPORT INFORMATION
  Report Type: Report from Study
  Country: DE (occurrence: DE)
  Receive Date: 20180529
  Receipt Date: 20180627
  Transmission Date: 20180711
  Serious: Yes (Hospitalization, Other)
  Sender: FDA-Public Use
  Company Number: DE-ROCHE-2124968

PATIENT
  Age: 62 Year
  Sex: Female
  Weight: 52.5 kg

DRUGS (27)
  1. PACLITAXEL. [Suspect]
     Active Substance: PACLITAXEL
     Indication: OVARIAN CANCER
     Dosage: MOST RECENT DOSE OF IV PACLITAXEL (278.25 MG) PRIOR TO SERIOUS ADVERSE EVENT (SAE) ONSET: 03/MAY/201
     Route: 042
     Dates: start: 20180503
  2. MCP [Concomitant]
     Active Substance: METOCLOPRAMIDE HYDROCHLORIDE
     Indication: NAUSEA
     Route: 065
     Dates: start: 20180320, end: 20180528
  3. DEXAMETHASON [Concomitant]
     Active Substance: DEXAMETHASONE
     Indication: VOMITING
     Route: 042
     Dates: start: 20180503, end: 20180503
  4. PALLADON [Concomitant]
     Active Substance: HYDROMORPHONE
     Dosage: PRN
     Route: 065
     Dates: start: 20180331
  5. DORMICUM (UNSPEC) [Concomitant]
     Route: 065
     Dates: start: 20180502, end: 20180502
  6. DIMENHYDRINAT [Concomitant]
     Active Substance: DIMENHYDRINATE
     Indication: NAUSEA
     Route: 065
     Dates: start: 20180429, end: 20180429
  7. PALONOSETRON. [Concomitant]
     Active Substance: PALONOSETRON HYDROCHLORIDE
     Indication: VOMITING
     Route: 065
     Dates: start: 20180503, end: 20180503
  8. PREDNISOLON [Concomitant]
     Active Substance: PREDNISOLONE
     Indication: INFLUENZA LIKE ILLNESS
  9. PALLADON [Concomitant]
     Active Substance: HYDROMORPHONE
     Indication: ABDOMINAL PAIN
     Route: 065
     Dates: start: 20180320
  10. FRAGMIN P FORTE [Concomitant]
     Active Substance: DALTEPARIN SODIUM
     Route: 065
     Dates: start: 20180511
  11. CLEMASTIN [Concomitant]
     Active Substance: CLEMASTINE
     Route: 065
     Dates: start: 20180503, end: 20180503
  12. PLASMAPHERESIS [Concomitant]
     Active Substance: UNSPECIFIED INGREDIENT
     Route: 065
     Dates: start: 20180620
  13. FLUCONAZOL [Concomitant]
     Active Substance: FLUCONAZOLE
     Route: 065
     Dates: start: 20180514, end: 20180517
  14. ANIDULAFUNGIN [Concomitant]
     Active Substance: ANIDULAFUNGIN
     Route: 065
     Dates: start: 20180518, end: 20180518
  15. ATEZOLIZUMAB. [Suspect]
     Active Substance: ATEZOLIZUMAB
     Indication: OVARIAN CANCER
     Dosage: MOST RECENT DOSE OF BLINDED ATEZOLIZUMAB PRIOR TO SERIOUS ADVERSE EVENT (SAE) ONSET: 03/MAY/2018
     Route: 042
     Dates: start: 20180503
  16. APREPITANT. [Concomitant]
     Active Substance: APREPITANT
     Indication: VOMITING
     Route: 065
     Dates: start: 20180503, end: 20180503
  17. FLUCONAZOL [Concomitant]
     Active Substance: FLUCONAZOLE
     Route: 065
     Dates: start: 20180518
  18. PREDNISOLON [Concomitant]
     Active Substance: PREDNISOLONE
     Indication: GENERAL PHYSICAL HEALTH DETERIORATION
     Route: 048
     Dates: start: 20180516
  19. PANTOZOL [Concomitant]
     Active Substance: PANTOPRAZOLE SODIUM
     Indication: NAUSEA
     Route: 065
     Dates: start: 20180416, end: 20180618
  20. FRAGMIN P FORTE [Concomitant]
     Active Substance: DALTEPARIN SODIUM
     Route: 065
     Dates: end: 20180504
  21. PROPOFOL. [Concomitant]
     Active Substance: PROPOFOL
     Route: 065
     Dates: start: 20180502, end: 20180502
  22. BUTYLSCOPOLAMIN [Concomitant]
     Route: 065
     Dates: start: 20180429, end: 20180429
  23. MEROPENEM. [Concomitant]
     Active Substance: MEROPENEM
     Indication: GENERAL PHYSICAL HEALTH DETERIORATION
  24. CARBOPLATIN. [Suspect]
     Active Substance: CARBOPLATIN
     Indication: OVARIAN CANCER
     Dosage: DOSE: TO ACHIEVE A TARGET AREA UNDER THE CURVE (AUC) OF 6 MILLIGRAMS PER MILLILITER*MINUTE (MG/ML*MI
     Route: 042
     Dates: start: 20180503
  25. RANITIDIN [Concomitant]
     Active Substance: RANITIDINE HYDROCHLORIDE
     Route: 065
     Dates: start: 20180503, end: 20180503
  26. MEROPENEM. [Concomitant]
     Active Substance: MEROPENEM
     Indication: ANTIBIOTIC PROPHYLAXIS
     Route: 065
     Dates: start: 20180516
  27. ONDASETRON [Concomitant]
     Active Substance: ONDANSETRON
     Indication: VOMITING
     Route: 065
     Dates: start: 20180513

REACTIONS (5)
  - Guillain-Barre syndrome [Not Recovered/Not Resolved]
  - General physical health deterioration [Not Recovered/Not Resolved]
  - Leukopenia [Recovered/Resolved]
  - Atrial fibrillation [Recovered/Resolved]
  - Electrolyte imbalance [Recovered/Resolved]

NARRATIVE: CASE EVENT DATE: 20180511
